FAERS Safety Report 20768838 (Version 1)
Quarter: 2022Q2

REPORT INFORMATION
  Report Type: Spontaneous
  Country: NL (occurrence: NL)
  Receive Date: 20220429
  Receipt Date: 20220429
  Transmission Date: 20220721
  Serious: Yes (Death)
  Sender: FDA-Public Use
  Company Number: NL-CHEPLA-2022002985

PATIENT
  Age: 4 Year
  Sex: Male

DRUGS (4)
  1. ETOPOSIDE PHOSPHATE [Suspect]
     Active Substance: ETOPOSIDE PHOSPHATE
     Indication: Bone marrow conditioning regimen
     Route: 065
  2. MELPHALAN [Suspect]
     Active Substance: MELPHALAN
     Indication: Bone marrow conditioning regimen
     Route: 065
  3. CARBOPLATIN [Suspect]
     Active Substance: CARBOPLATIN
     Indication: Bone marrow conditioning regimen
     Route: 065
  4. ITRACONAZOLE [Suspect]
     Active Substance: ITRACONAZOLE
     Indication: Prophylaxis
     Route: 065

REACTIONS (4)
  - Candida sepsis [Fatal]
  - Respiratory failure [Fatal]
  - Cardiac failure [Fatal]
  - Product use in unapproved indication [Unknown]
